FAERS Safety Report 25037245 (Version 2)
Quarter: 2025Q2

REPORT INFORMATION
  Report Type: Report from Study
  Country: FR (occurrence: FR)
  Receive Date: 20250304
  Receipt Date: 20250402
  Transmission Date: 20250717
  Serious: Yes (Other)
  Sender: PFIZER
  Company Number: FR-GSK-FR2025GSK020317

PATIENT
  Age: 66 Year
  Sex: Female

DRUGS (9)
  1. CARBOPLATIN [Suspect]
     Active Substance: CARBOPLATIN
     Indication: Cervix neoplasm
     Dates: start: 20240924, end: 20240927
  2. CARBOPLATIN [Suspect]
     Active Substance: CARBOPLATIN
     Indication: Endometrial cancer
     Dates: start: 20241004, end: 20241108
  3. CARBOPLATIN [Suspect]
     Active Substance: CARBOPLATIN
     Dates: start: 20241120, end: 20250110
  4. PACLITAXEL [Suspect]
     Active Substance: PACLITAXEL
     Indication: Cervix neoplasm
     Dates: start: 20240924, end: 20240927
  5. PACLITAXEL [Suspect]
     Active Substance: PACLITAXEL
     Indication: Endometrial cancer
     Dates: start: 20241004, end: 20241108
  6. PACLITAXEL [Suspect]
     Active Substance: PACLITAXEL
     Dates: start: 20241120, end: 20250110
  7. DOSTARLIMAB [Suspect]
     Active Substance: DOSTARLIMAB
     Indication: Endometrial cancer
     Dosage: 500 MG, Q3W
     Dates: start: 20240924
  8. DOSTARLIMAB [Suspect]
     Active Substance: DOSTARLIMAB
     Indication: Cervix neoplasm
     Dates: start: 20241120
  9. DOSTARLIMAB [Suspect]
     Active Substance: DOSTARLIMAB
     Dates: start: 20250110

REACTIONS (3)
  - Adrenal insufficiency [Unknown]
  - Neutropenia [Unknown]
  - Hypopituitarism [Recovering/Resolving]

NARRATIVE: CASE EVENT DATE: 20250109
